FAERS Safety Report 12243335 (Version 1)
Quarter: 2016Q2

REPORT INFORMATION
  Report Type: Spontaneous
  Country: US (occurrence: US)
  Receive Date: 20160406
  Receipt Date: 20160406
  Transmission Date: 20160815
  Serious: No
  Sender: FDA-Public Use
  Company Number: US-SA-2016SA017062

PATIENT
  Age: 73 Year
  Sex: Female

DRUGS (2)
  1. FLONASE [Suspect]
     Active Substance: FLUTICASONE PROPIONATE
     Route: 065
  2. ALLEGRA-D [Suspect]
     Active Substance: FEXOFENADINE\PSEUDOEPHEDRINE
     Indication: HYPERSENSITIVITY
     Dosage: FEX180 MG/PSEUD 240MG
     Route: 065

REACTIONS (5)
  - Constipation [Unknown]
  - Rhinorrhoea [Unknown]
  - Drug ineffective [Unknown]
  - Insomnia [Unknown]
  - Sneezing [Unknown]
